FAERS Safety Report 13805277 (Version 1)
Quarter: 2017Q3

REPORT INFORMATION
  Report Type: Spontaneous
  Country: FR (occurrence: FR)
  Receive Date: 20170728
  Receipt Date: 20170728
  Transmission Date: 20171127
  Serious: Yes (Hospitalization)
  Sender: FDA-Public Use
  Company Number: FR-ASCEND THERAPEUTICS-2023869

PATIENT
  Age: 53 Year
  Sex: Female

DRUGS (10)
  1. CRESTOR [Suspect]
     Active Substance: ROSUVASTATIN CALCIUM
     Route: 048
  2. MICROPAQUE (BARIUM SULFATE) [Suspect]
     Active Substance: BARIUM SULFATE
     Route: 065
  3. OPTIJECT (IOVERSOL) [Suspect]
     Active Substance: IOVERSOL
     Route: 065
  4. TRANSIPEG (MACROGOL 3350) [Suspect]
     Active Substance: POLYETHYLENE GLYCOL 3350
     Route: 065
  5. ESTROGEL [Suspect]
     Active Substance: ESTRADIOL
     Indication: PRODUCT USED FOR UNKNOWN INDICATION
     Route: 065
  6. EFFEXOR [Suspect]
     Active Substance: VENLAFAXINE HYDROCHLORIDE
     Route: 048
     Dates: end: 20170713
  7. NUROFEN (IBUPROFEN) [Suspect]
     Active Substance: IBUPROFEN
     Route: 065
     Dates: start: 201706, end: 20170713
  8. ASPIRIN. [Suspect]
     Active Substance: ASPIRIN
     Route: 048
  9. INEXIUM (ESOMEPRAZOLE MAGNESIUM) [Suspect]
     Active Substance: ESOMEPRAZOLE MAGNESIUM
     Route: 065
     Dates: start: 201706, end: 20170713
  10. XANAX [Suspect]
     Active Substance: ALPRAZOLAM
     Route: 065
     Dates: start: 201706

REACTIONS (4)
  - Mouth ulceration [Unknown]
  - Neutropenia [Recovering/Resolving]
  - Pyrexia [Recovering/Resolving]
  - Agranulocytosis [Recovered/Resolved]

NARRATIVE: CASE EVENT DATE: 20170710
